FAERS Safety Report 18626529 (Version 1)
Quarter: 2020Q4

REPORT INFORMATION
  Report Type: Spontaneous
  Country: GB (occurrence: GB)
  Receive Date: 20201216
  Receipt Date: 20201216
  Transmission Date: 20210114
  Serious: Yes (Hospitalization, Other)
  Sender: FDA-Public Use
  Company Number: GB-SUN PHARMACEUTICAL INDUSTRIES LTD-2019R1-224578

PATIENT
  Age: 48 Year
  Sex: Female

DRUGS (4)
  1. FLUOROURACIL. [Suspect]
     Active Substance: FLUOROURACIL
     Indication: GASTROOESOPHAGEAL CANCER
     Dosage: UNK
     Route: 065
  2. EPIRUBICIN [Suspect]
     Active Substance: EPIRUBICIN
     Indication: GASTROOESOPHAGEAL CANCER
     Dosage: UNK
     Route: 065
  3. CAPECITABINE. [Suspect]
     Active Substance: CAPECITABINE
     Indication: GASTROOESOPHAGEAL CANCER
     Dosage: UNK
     Route: 065
  4. CISPLATIN. [Suspect]
     Active Substance: CISPLATIN
     Indication: GASTROOESOPHAGEAL CANCER
     Dosage: UNK
     Route: 065

REACTIONS (3)
  - Gait disturbance [Recovered/Resolved]
  - Aortic thrombosis [Recovered/Resolved]
  - Paraesthesia [Recovered/Resolved]
